FAERS Safety Report 15654366 (Version 3)
Quarter: 2019Q1

REPORT INFORMATION
  Report Type: Spontaneous
  Country: US (occurrence: US)
  Receive Date: 20181126
  Receipt Date: 20190316
  Transmission Date: 20190417
  Serious: No
  Sender: FDA-Public Use
  Company Number: US-JNJFOC-20181113747

PATIENT
  Age: 70 Year
  Sex: Female
  Weight: 53.7 kg

DRUGS (3)
  1. MERCAPTOPURINE. [Concomitant]
     Active Substance: MERCAPTOPURINE
     Route: 065
  2. VITAMIN D [Concomitant]
     Active Substance: CHOLECALCIFEROL
     Route: 065
  3. REMICADE [Suspect]
     Active Substance: INFLIXIMAB
     Indication: CROHN^S DISEASE
     Route: 042
     Dates: end: 2018

REACTIONS (3)
  - Inappropriate schedule of product administration [Unknown]
  - Product container issue [Unknown]
  - Product storage error [Unknown]

NARRATIVE: CASE EVENT DATE: 201810
